FAERS Safety Report 12277403 (Version 1)
Quarter: 2016Q2

REPORT INFORMATION
  Report Type: Report from Study
  Country: US (occurrence: US)
  Receive Date: 20160418
  Receipt Date: 20160418
  Transmission Date: 20160815
  Serious: Yes (Hospitalization)
  Sender: FDA-Public Use
  Company Number: US-BIOGEN-2016BI00215579

PATIENT
  Age: 78 Year
  Sex: Male
  Weight: 69.01 kg

DRUGS (25)
  1. ASPIRIN. [Concomitant]
     Active Substance: ASPIRIN
     Indication: CARDIOVASCULAR EVENT PROPHYLAXIS
     Route: 048
     Dates: start: 2013
  2. VITAMIN C [Concomitant]
     Active Substance: ASCORBIC ACID
     Indication: NUTRITIONAL SUPPLEMENTATION
     Route: 048
     Dates: start: 2004
  3. VITAMIN C [Concomitant]
     Active Substance: ASCORBIC ACID
  4. BIIB037 [Suspect]
     Active Substance: ADUCANUMAB
     Indication: DEMENTIA ALZHEIMER^S TYPE
     Route: 042
     Dates: start: 20160113
  5. IMMUNE ESSENTIALS [Concomitant]
     Indication: NUTRITIONAL SUPPLEMENTATION
     Dosage: 1 TAB
     Route: 048
     Dates: start: 2004
  6. GALANTAMINE. [Concomitant]
     Active Substance: GALANTAMINE
     Route: 065
  7. ROSE HIPS [Concomitant]
     Indication: NUTRITIONAL SUPPLEMENTATION
     Route: 048
     Dates: start: 2004
  8. BALANCE B 50 [Concomitant]
     Indication: NUTRITIONAL SUPPLEMENTATION
     Dosage: 1 TAB
     Route: 048
     Dates: start: 2004
  9. SWANSON COLON ESSENTIALS [Concomitant]
     Indication: NUTRITIONAL SUPPLEMENTATION
     Dosage: 1 TAB
     Route: 048
     Dates: start: 2004
  10. ULTRA SEMSC SELENIUM [Concomitant]
     Indication: NUTRITIONAL SUPPLEMENTATION
     Route: 048
     Dates: start: 2004
  11. VITAMIN E [Concomitant]
     Active Substance: .ALPHA.-TOCOPHEROL
     Indication: NUTRITIONAL SUPPLEMENTATION
     Route: 048
     Dates: start: 2004
  12. VITAMIN C [Concomitant]
     Active Substance: ASCORBIC ACID
     Dosage: 1 TAB
  13. FISH OIL [Concomitant]
     Active Substance: FISH OIL
     Indication: NUTRITIONAL SUPPLEMENTATION
     Route: 048
     Dates: start: 2004
  14. AMYVID [Suspect]
     Active Substance: FLORBETAPIR F-18
     Indication: POSITRON EMISSION TOMOGRAM
     Route: 040
     Dates: start: 20151215, end: 20151215
  15. FISH OIL [Concomitant]
     Active Substance: FISH OIL
     Dosage: 1 CAPSULE
  16. METAMUCIL [Concomitant]
     Active Substance: PLANTAGO SEED
     Route: 048
  17. CALCIUM [Concomitant]
     Active Substance: CALCIUM
     Route: 065
  18. GALANTAMINE. [Concomitant]
     Active Substance: GALANTAMINE
  19. HEART ESSENTIALS [Concomitant]
     Indication: NUTRITIONAL SUPPLEMENTATION
     Dosage: 1 TAB
     Route: 048
     Dates: start: 2004
  20. SAW PALMETTO [Concomitant]
     Active Substance: SAW PALMETTO
     Route: 048
  21. PROSTATE ESSENTIALS [Concomitant]
     Indication: NUTRITIONAL SUPPLEMENTATION
     Dosage: 1 TAB
     Route: 048
     Dates: start: 2004
  22. MEN^S MULTI-VITAMIN [Concomitant]
     Indication: NUTRITIONAL SUPPLEMENTATION
     Dosage: 1 TAB
     Route: 048
     Dates: start: 2004
  23. LEVOTHYROXINE. [Concomitant]
     Active Substance: LEVOTHYROXINE
     Indication: HYPOTHYROIDISM
     Route: 048
     Dates: start: 20160306
  24. OMEGA 3 [Concomitant]
     Active Substance: OMEGA-3 FATTY ACIDS
     Indication: NUTRITIONAL SUPPLEMENTATION
     Route: 048
     Dates: start: 2004
  25. METAMUCIL [Concomitant]
     Active Substance: PLANTAGO SEED
     Indication: NUTRITIONAL SUPPLEMENTATION
     Dosage: 1 CAPSULE
     Route: 048
     Dates: start: 2013

REACTIONS (1)
  - Acquired oesophageal web [Not Recovered/Not Resolved]

NARRATIVE: CASE EVENT DATE: 20160402
